FAERS Safety Report 9794615 (Version 1)
Quarter: 2014Q1

REPORT INFORMATION
  Report Type: Spontaneous
  Country: US (occurrence: US)
  Receive Date: 20140102
  Receipt Date: 20140102
  Transmission Date: 20141002
  Serious: Yes (Disabling)
  Sender: FDA-Public Use
  Company Number: US-GE HEALTHCARE MEDICAL DIAGNOSTICS-OSCN-PR-1312S-0143

PATIENT
  Sex: Male

DRUGS (10)
  1. OMNISCAN [Suspect]
     Indication: TINNITUS
     Route: 042
     Dates: start: 20060221, end: 20060221
  2. GADOLINIUM (UNSPECIFIED) [Suspect]
     Indication: HEADACHE
     Dates: start: 19991216, end: 19991216
  3. GADOLINIUM (UNSPECIFIED) [Suspect]
     Indication: FATIGUE
     Dates: start: 20021102, end: 20021102
  4. PREDNISONE [Concomitant]
  5. DOVONEX [Concomitant]
  6. EPOGEN [Concomitant]
  7. ALDARA [Concomitant]
  8. EFUDEX [Concomitant]
  9. LYRICA [Concomitant]
  10. PSORALEN [Concomitant]

REACTIONS (1)
  - Nephrogenic systemic fibrosis [Not Recovered/Not Resolved]
